FAERS Safety Report 8694853 (Version 6)
Quarter: 2014Q2

REPORT INFORMATION
  Report Type: Spontaneous
  Country: US (occurrence: US)
  Receive Date: 20120731
  Receipt Date: 20140530
  Transmission Date: 20141212
  Serious: Yes (Other)
  Sender: FDA-Public Use
  Company Number: US-ASTRAZENECA-2011SE31561

PATIENT
  Age: 21518 Day
  Sex: Female
  Weight: 96.2 kg

DRUGS (10)
  1. NEXIUM [Suspect]
     Indication: GASTROOESOPHAGEAL REFLUX DISEASE
     Route: 048
     Dates: start: 2004
  2. NEXIUM [Suspect]
     Indication: GASTROOESOPHAGEAL REFLUX DISEASE
     Route: 048
     Dates: start: 2004
  3. SYMBICORT [Suspect]
     Indication: DYSPNOEA
     Dosage: 160/4.5 MCG, 2 PUFFS BID
     Route: 055
     Dates: start: 201308, end: 201311
  4. SYMBICORT [Suspect]
     Indication: ASTHMA
     Dosage: 160/4.5 MCG, 2 PUFFS BID
     Route: 055
     Dates: start: 201308, end: 201311
  5. SYMBICORT [Suspect]
     Indication: CHRONIC OBSTRUCTIVE PULMONARY DISEASE
     Dosage: 160/4.5 MCG, 2 PUFFS BID
     Route: 055
     Dates: start: 201308, end: 201311
  6. EFFEXOR [Concomitant]
     Indication: DEPRESSION
     Route: 048
  7. KLONOPIN [Concomitant]
     Indication: ANXIETY
     Route: 048
  8. VICODIN [Concomitant]
     Indication: PAIN
  9. SINGULAIR [Concomitant]
  10. SAFETY INHALER [Concomitant]

REACTIONS (16)
  - Fall [Recovered/Resolved]
  - Apnoea [Unknown]
  - Dyspnoea [Unknown]
  - Dyspepsia [Unknown]
  - Dysphagia [Unknown]
  - Gastrooesophageal reflux disease [Unknown]
  - Abdominal discomfort [Unknown]
  - Malaise [Not Recovered/Not Resolved]
  - Mood altered [Unknown]
  - Weight increased [Not Recovered/Not Resolved]
  - Anxiety [Not Recovered/Not Resolved]
  - Sleep disorder due to general medical condition, insomnia type [Not Recovered/Not Resolved]
  - Adverse event [Unknown]
  - Weight decreased [Not Recovered/Not Resolved]
  - Off label use [Unknown]
  - Drug dose omission [Not Recovered/Not Resolved]
